FAERS Safety Report 4818324-2 (Version None)
Quarter: 2005Q3

REPORT INFORMATION
  Report Type: 
  Country: None (occurrence: None)
  Receive Date: 20050929
  Receipt Date: 20050706
  Transmission Date: 20060218
  Serious: No
  Sender: FDA-Public Use
  Company Number: 05P-163-0304915-00

PATIENT
  Age: 71 Year
  Sex: Female
  Weight: 56.6996 kg

DRUGS (7)
  1. HUMIRA [Suspect]
     Indication: RHEUMATOID ARTHRITIS
     Dosage: 40 MG, 1 IN 2 WK, SUBCUTANEOUS
     Route: 058
     Dates: start: 20030101, end: 20041201
  2. HUMIRA [Suspect]
     Indication: RHEUMATOID ARTHRITIS
     Dosage: 40 MG, 1 IN 2 WK, SUBCUTANEOUS
     Route: 058
     Dates: start: 20050101, end: 20050201
  3. METHOTREXATE [Concomitant]
  4. NABUMETONE [Concomitant]
  5. FOLIC ACID [Concomitant]
  6. LEUCOVORIN CALCIUM [Concomitant]
  7. RISEDRONATE SODIUM [Concomitant]

REACTIONS (3)
  - GASTRIC DISORDER [None]
  - INFECTED SKIN ULCER [None]
  - SKIN ULCER [None]
